FAERS Safety Report 13026483 (Version 1)
Quarter: 2016Q4

REPORT INFORMATION
  Report Type: Spontaneous
  Country: US (occurrence: US)
  Receive Date: 20161214
  Receipt Date: 20161214
  Transmission Date: 20170207
  Serious: No
  Sender: FDA-Public Use
  Company Number: US-GLAXOSMITHKLINE-US2016184500

PATIENT
  Age: 64 Year
  Sex: Female

DRUGS (6)
  1. TOPIRAMATE. [Concomitant]
     Active Substance: TOPIRAMATE
  2. FOLIC ACID. [Concomitant]
     Active Substance: FOLIC ACID
  3. RIZATRIPTAN. [Concomitant]
     Active Substance: RIZATRIPTAN
  4. PRAVASTATIN. [Concomitant]
     Active Substance: PRAVASTATIN
  5. METHOTREXATE. [Concomitant]
     Active Substance: METHOTREXATE
  6. BENLYSTA [Suspect]
     Active Substance: BELIMUMAB
     Indication: SYSTEMIC LUPUS ERYTHEMATOSUS
     Dosage: UNK UNK, U
     Dates: start: 20160930

REACTIONS (1)
  - Urinary tract infection [Not Recovered/Not Resolved]

NARRATIVE: CASE EVENT DATE: 20161014
